FAERS Safety Report 8390952-X (Version None)
Quarter: 2012Q2

REPORT INFORMATION
  Report Type: 
  Country: None (occurrence: None)
  Receive Date: 20120529
  Receipt Date: 20120524
  Transmission Date: 20120825
  Serious: Yes (Other)
  Sender: FDA-Public Use
  Company Number: PHHY2012MX034650

PATIENT
  Sex: Male

DRUGS (2)
  1. NOOTROPIL [Concomitant]
     Indication: CEREBRAL DISORDER
     Dosage: 800 MG, UNK
  2. ONBREZ [Suspect]
     Indication: CHRONIC OBSTRUCTIVE PULMONARY DISEASE
     Dosage: 150 UG, QD
     Dates: start: 20110919

REACTIONS (1)
  - DEAFNESS [None]
